FAERS Safety Report 7469141-9 (Version None)
Quarter: 2011Q2

REPORT INFORMATION
  Report Type: 
  Country: None (occurrence: None)
  Receive Date: 20110510
  Receipt Date: 20110117
  Transmission Date: 20111010
  Serious: Yes (Other)
  Sender: FDA-Public Use
  Company Number: US-BAYER-201030783NA

PATIENT
  Age: 21 Year
  Sex: Female
  Weight: 100 kg

DRUGS (7)
  1. MOTRIN [Concomitant]
  2. UNCODEABLE ^UNCLASSIFIABLE^ [Concomitant]
     Indication: BLOOD PRESSURE ABNORMAL
     Dosage: UNK
     Dates: start: 20060101, end: 20090101
  3. VICODIN [Concomitant]
     Dosage: UNK
     Route: 048
     Dates: start: 20080805
  4. YAZ [Suspect]
     Indication: CONTRACEPTION
     Dosage: 2 MONTHS OF SAMPLES IN 2008
     Route: 048
     Dates: start: 20080301, end: 20081001
  5. ANTIBIOTICS [Concomitant]
  6. ASPIRIN [Concomitant]
     Dosage: UNK
     Route: 048
     Dates: start: 20080805
  7. YAZ [Suspect]
     Indication: PREMENSTRUAL SYNDROME

REACTIONS (8)
  - DIZZINESS [None]
  - PALPITATIONS [None]
  - SUPRAVENTRICULAR EXTRASYSTOLES [None]
  - CARDIOVASCULAR DISORDER [None]
  - EXTRASYSTOLES [None]
  - VENTRICULAR EXTRASYSTOLES [None]
  - CHEST PAIN [None]
  - NERVOUSNESS [None]
